FAERS Safety Report 8366444-0 (Version None)
Quarter: 2012Q2

REPORT INFORMATION
  Report Type: 
  Country: None (occurrence: None)
  Receive Date: 20120517
  Receipt Date: 20120510
  Transmission Date: 20120825
  Serious: No
  Sender: FDA-Public Use
  Company Number: US-ASTRAZENECA-2011SE41437

PATIENT
  Age: 63 Year
  Sex: Female

DRUGS (10)
  1. NEXIUM [Suspect]
     Route: 048
     Dates: start: 20050101, end: 20110501
  2. AMLOPIDI [Concomitant]
     Indication: HYPERTENSION
     Dates: start: 20091130
  3. AMBTEN CR [Concomitant]
     Dosage: 12.5 MG
     Dates: start: 20090804
  4. NEXIUM [Suspect]
     Indication: GASTROOESOPHAGEAL REFLUX DISEASE
     Route: 048
     Dates: start: 20010101, end: 20110601
  5. PREVACID [Concomitant]
  6. NEXIUM [Suspect]
     Route: 048
     Dates: start: 20090806
  7. HYDROCODONE BITARTRATE [Concomitant]
     Indication: PAIN
     Dates: start: 20090804
  8. LOSARTA [Concomitant]
     Indication: HYPERTENSION
  9. HYZAAR [Concomitant]
     Dates: start: 20090803
  10. LISINOPRIL [Concomitant]

REACTIONS (11)
  - ACCIDENT AT WORK [None]
  - INFECTION [None]
  - EMOTIONAL DISTRESS [None]
  - RIB FRACTURE [None]
  - COUGH [None]
  - POST-TRAUMATIC STRESS DISORDER [None]
  - DEPRESSION [None]
  - TOOTH ABSCESS [None]
  - ANXIETY [None]
  - JOINT INJURY [None]
  - PAIN [None]
